FAERS Safety Report 7465446-6 (Version None)
Quarter: 2011Q2

REPORT INFORMATION
  Report Type: 
  Country: None (occurrence: None)
  Receive Date: 20110509
  Receipt Date: 20110427
  Transmission Date: 20111010
  Serious: Yes (Hospitalization, Disabling, Other)
  Sender: FDA-Public Use
  Company Number: US-ROCHE-743345

PATIENT
  Sex: Female
  Weight: 38.6 kg

DRUGS (1)
  1. ACCUTANE [Suspect]
     Indication: ACNE
     Route: 065
     Dates: start: 19820601, end: 19821001

REACTIONS (11)
  - INTESTINAL OBSTRUCTION [None]
  - ANAL ULCER [None]
  - JEJUNAL PERFORATION [None]
  - GASTROINTESTINAL INJURY [None]
  - INFLAMMATORY BOWEL DISEASE [None]
  - ANAL FISSURE [None]
  - CROHN'S DISEASE [None]
  - COLITIS ULCERATIVE [None]
  - INTESTINAL HAEMORRHAGE [None]
  - RHEUMATOID ARTHRITIS [None]
  - ANXIETY [None]
